FAERS Safety Report 22389121 (Version 3)
Quarter: 2024Q1

REPORT INFORMATION
  Report Type: Report from Study
  Country: CN (occurrence: CN)
  Receive Date: 20230531
  Receipt Date: 20240204
  Transmission Date: 20240409
  Serious: Yes (Other)
  Sender: FDA-Public Use
  Company Number: CN-TAKEDA-2023TUS053317

PATIENT
  Age: 46 Year
  Sex: Male

DRUGS (5)
  1. VEDOLIZUMAB [Suspect]
     Active Substance: VEDOLIZUMAB
     Indication: Colitis ulcerative
     Dosage: 300 MILLIGRAM
     Route: 042
     Dates: start: 20221013
  2. Compound glutamine [Concomitant]
     Indication: Inflammatory bowel disease
     Dosage: UNK
     Dates: start: 2021
  3. Compound glutamine [Concomitant]
     Dosage: UNK UNK, TID
     Route: 048
     Dates: start: 20221012
  4. BACILLUS LICHENIFORMIS CAPSULE,LIVE [Concomitant]
     Indication: Inflammatory bowel disease
     Dosage: 0.5 GRAM, TID
     Route: 048
     Dates: start: 20221012
  5. MESALAMINE [Concomitant]
     Active Substance: MESALAMINE
     Indication: Inflammatory bowel disease
     Dosage: 0.25 GRAM, TID
     Route: 054
     Dates: start: 20221012

REACTIONS (2)
  - Pneumonia [Recovered/Resolved]
  - Rhinitis [Recovered/Resolved]

NARRATIVE: CASE EVENT DATE: 20230211
